FAERS Safety Report 10969017 (Version 1)
Quarter: 2015Q1

REPORT INFORMATION
  Report Type: Spontaneous
  Country: US (occurrence: US)
  Receive Date: 20150331
  Receipt Date: 20150331
  Transmission Date: 20150721
  Serious: Yes (Hospitalization)
  Sender: FDA-Public Use
  Company Number: US-ROCHE-1556045

PATIENT
  Age: 25 Year
  Sex: Female
  Weight: 59 kg

DRUGS (3)
  1. NEXPLANON [Concomitant]
     Active Substance: ETONOGESTREL
     Route: 065
     Dates: start: 20140207
  2. KLONOPIN [Suspect]
     Active Substance: CLONAZEPAM
     Indication: ANXIETY
     Dosage: 1MG IN THE MORNING AND 0.5MG IN THE EVENING
     Route: 065
  3. KLONOPIN [Suspect]
     Active Substance: CLONAZEPAM
     Indication: PANIC ATTACK

REACTIONS (10)
  - Depression [Not Recovered/Not Resolved]
  - Hostility [Not Recovered/Not Resolved]
  - Panic attack [Not Recovered/Not Resolved]
  - Mental disorder [Not Recovered/Not Resolved]
  - Anxiety [Not Recovered/Not Resolved]
  - Suicidal ideation [Recovered/Resolved]
  - Suicide attempt [Not Recovered/Not Resolved]
  - Agitation [Not Recovered/Not Resolved]
  - Amnesia [Not Recovered/Not Resolved]
  - Post-traumatic stress disorder [Not Recovered/Not Resolved]

NARRATIVE: CASE EVENT DATE: 20141217
